FAERS Safety Report 24877254 (Version 1)
Quarter: 2025Q1

REPORT INFORMATION
  Report Type: Spontaneous
  Country: US (occurrence: US)
  Receive Date: 20250123
  Receipt Date: 20250123
  Transmission Date: 20250409
  Serious: Yes (Life-Threatening, Hospitalization, Other)
  Sender: ALKEM
  Company Number: US-ALKEM LABORATORIES LIMITED-US-ALKEM-2024-26925

PATIENT
  Age: 14 Year
  Sex: Female
  Weight: 42 kg

DRUGS (1)
  1. AMLODIPINE BESYLATE [Suspect]
     Active Substance: AMLODIPINE BESYLATE
     Indication: Product used for unknown indication
     Route: 048

REACTIONS (12)
  - Cardiac arrest [Recovered/Resolved]
  - Azotaemia [Unknown]
  - Blood lactic acid increased [Recovering/Resolving]
  - Hypotension [Recovered/Resolved]
  - Lethargy [Unknown]
  - Atrioventricular block complete [Recovered/Resolved]
  - Electrocardiogram QT prolonged [Unknown]
  - Intentional overdose [Unknown]
  - Toxicity to various agents [Recovered/Resolved]
  - Drug level increased [Unknown]
  - Nodal rhythm [Unknown]
  - Bradycardia [Unknown]
